FAERS Safety Report 19584434 (Version 1)
Quarter: 2021Q3

REPORT INFORMATION
  Report Type: Report from Study
  Country: None (occurrence: US)
  Receive Date: 20210720
  Receipt Date: 20210720
  Transmission Date: 20211014
  Serious: Yes (Hospitalization)
  Sender: FDA-Public Use
  Company Number: US-ABBVIE-21K-163-3996380-00

PATIENT
  Sex: Female

DRUGS (2)
  1. RINVOQ [Suspect]
     Active Substance: UPADACITINIB
     Indication: RHEUMATOID ARTHRITIS
     Route: 048
     Dates: start: 202102, end: 2021
  2. MODERNA COVID?19 VACCINE [Suspect]
     Active Substance: CX-024414
     Indication: COVID-19 IMMUNISATION
     Route: 030

REACTIONS (2)
  - Diverticulitis [Unknown]
  - Chills [Not Recovered/Not Resolved]

NARRATIVE: CASE EVENT DATE: 2021
